FAERS Safety Report 11073439 (Version 1)
Quarter: 2015Q2

REPORT INFORMATION
  Report Type: Report from Study
  Country: US (occurrence: US)
  Receive Date: 20150428
  Receipt Date: 20150428
  Transmission Date: 20150821
  Serious: Yes (Other)
  Sender: FDA-Public Use
  Company Number: US-SA-2014SA162934

PATIENT
  Age: 74 Year
  Sex: Female

DRUGS (1)
  1. AUBAGIO [Suspect]
     Active Substance: TERIFLUNOMIDE
     Indication: MULTIPLE SCLEROSIS
     Route: 048
     Dates: start: 20141105

REACTIONS (12)
  - Urinary tract infection [Unknown]
  - Paraesthesia [Unknown]
  - Clostridium difficile infection [Unknown]
  - Multiple sclerosis relapse [Unknown]
  - Cellulitis laryngeal [Unknown]
  - Aphonia [Recovering/Resolving]
  - Staphylococcal infection [Unknown]
  - Burning sensation [Recovering/Resolving]
  - Influenza [Unknown]
  - Asthenia [Not Recovered/Not Resolved]
  - Cognitive disorder [Not Recovered/Not Resolved]
  - Headache [Unknown]

NARRATIVE: CASE EVENT DATE: 201412
